FAERS Safety Report 14285669 (Version 2)
Quarter: 2018Q4

REPORT INFORMATION
  Report Type: Spontaneous
  Country: US (occurrence: US)
  Receive Date: 20171214
  Receipt Date: 20181017
  Transmission Date: 20190204
  Serious: Yes (Other)
  Sender: FDA-Public Use
  Company Number: US-ASTELLAS-2017US027690

PATIENT
  Age: 68 Year
  Sex: Male

DRUGS (1)
  1. TARCEVA [Suspect]
     Active Substance: ERLOTINIB HYDROCHLORIDE
     Indication: LUNG NEOPLASM MALIGNANT
     Route: 048
     Dates: start: 20170518

REACTIONS (20)
  - Rash [Unknown]
  - Impaired healing [Unknown]
  - Ill-defined disorder [Unknown]
  - Fatigue [Unknown]
  - Oesophageal irritation [Unknown]
  - Thirst [Not Recovered/Not Resolved]
  - Diet noncompliance [Unknown]
  - Chills [Not Recovered/Not Resolved]
  - Chills [Unknown]
  - Fatigue [Unknown]
  - Abdominal discomfort [Unknown]
  - Skin ulcer [Unknown]
  - Depression [Unknown]
  - Diarrhoea [Not Recovered/Not Resolved]
  - Decreased appetite [Not Recovered/Not Resolved]
  - Osteogenesis imperfecta [Unknown]
  - Influenza like illness [Unknown]
  - Dry skin [Unknown]
  - Chills [Unknown]
  - Pyrexia [Not Recovered/Not Resolved]

NARRATIVE: CASE EVENT DATE: 20170525
